FAERS Safety Report 16612168 (Version 1)
Quarter: 2019Q3

REPORT INFORMATION
  Report Type: Spontaneous
  Country: US (occurrence: US)
  Receive Date: 20190722
  Receipt Date: 20190722
  Transmission Date: 20191004
  Serious: No
  Sender: FDA-Public Use
  Company Number: US-FOUNDATIONCONSUMERHC-2019-US-008176

PATIENT
  Age: 21 Year
  Sex: Female
  Weight: 97.52 kg

DRUGS (4)
  1. TAKE ACTION [Suspect]
     Active Substance: LEVONORGESTREL
     Indication: POST COITAL CONTRACEPTION
     Dosage: 1.5 MG
     Route: 048
     Dates: start: 20190501, end: 20190501
  2. BIRTH CONTROL ORAL [Concomitant]
  3. IRON [Concomitant]
     Active Substance: IRON
  4. UNSPECIFIED INHALER [Concomitant]
     Active Substance: UNSPECIFIED INGREDIENT
     Dosage: AS NEEDED

REACTIONS (2)
  - Vomiting [Recovered/Resolved]
  - Intentional product misuse [Recovered/Resolved]

NARRATIVE: CASE EVENT DATE: 20190501
